FAERS Safety Report 8767797 (Version 2)
Quarter: 2016Q3

REPORT INFORMATION
  Report Type: Report from Study
  Country: DE (occurrence: DE)
  Receive Date: 20120905
  Receipt Date: 20160722
  Transmission Date: 20161109
  Serious: Yes (Hospitalization, Other)
  Sender: FDA-Public Use
  Company Number: DE-ROCHE-1113050

PATIENT
  Age: 19 Year
  Sex: Male
  Weight: 97.9 kg

DRUGS (12)
  1. CANDIO HERMAL [Concomitant]
     Dosage: DOSE: 3X1 PIP, DATE OF LAST DOSE PRIOR TO SAE: 28/SEP/2011, DRUG INDICATION: APHTHEN
     Route: 048
     Dates: start: 20110928
  2. METHYLPREDNISOLONE. [Suspect]
     Active Substance: METHYLPREDNISOLONE
     Indication: PROPHYLAXIS AGAINST TRANSPLANT REJECTION
     Dosage: DATE OF LAST DOSE PRIOR TO SAE: 28/SEP/2011
     Route: 048
     Dates: start: 20110613
  3. CANDIO HERMAL [Concomitant]
     Indication: PROPHYLAXIS
     Dosage: DOSE: 3X1 PIP, DATE OF LAST DOSE PRIOR TO SAE: 28/SEP/2011
     Route: 048
     Dates: start: 20110613
  4. ZANTAC [Concomitant]
     Active Substance: RANITIDINE HYDROCHLORIDE
     Indication: PROPHYLAXIS
     Dosage: DATE OF LAST DOSE PRIOR TO SAE: 28/SEP/2011
     Route: 048
     Dates: start: 20110721
  5. VALGANCICLOVIR. [Suspect]
     Active Substance: VALGANCICLOVIR
     Indication: INFECTION IN AN IMMUNOCOMPROMISED HOST
     Route: 065
  6. ROCEPHIN [Concomitant]
     Active Substance: CEFTRIAXONE SODIUM
     Indication: PROPHYLAXIS
     Dosage: DATE OF LAST DOSE PRIOR TO SAE: 28/SEP/2011
     Route: 048
     Dates: start: 20110613
  7. AMPICILLIN [Concomitant]
     Active Substance: AMPICILLIN
     Dosage: DATE OF LAST DOSE PRIOR TO SAE: 28/SEP/2011
     Route: 042
     Dates: start: 20110928
  8. MYCOPHENOLATE MOFETIL. [Suspect]
     Active Substance: MYCOPHENOLATE MOFETIL
     Indication: PRODUCT USED FOR UNKNOWN INDICATION
     Route: 065
  9. BICANORM [Concomitant]
     Active Substance: SODIUM BICARBONATE
     Indication: METABOLIC ACIDOSIS
     Dosage: DATE OF LAST DOSE PRIOR TO SAE: 28/SEP/2011
     Route: 048
     Dates: start: 20110707
  10. VIGANTOLETTEN [Concomitant]
     Active Substance: CHOLECALCIFEROL
     Indication: HYPERPARATHYROIDISM SECONDARY
     Dosage: DOSE: 2000E, DATE OF LAST DOSE PRIOR TO SAE: 28/SEP/2011
     Route: 048
     Dates: start: 20110831
  11. FORTUM [Concomitant]
     Active Substance: CEFTAZIDIME
     Dosage: DATE OF LAST DOSE PRIOR TO SAE: 28/SEP/2011
     Route: 042
     Dates: start: 20110928
  12. TACROLIMUS. [Suspect]
     Active Substance: TACROLIMUS
     Indication: PROPHYLAXIS AGAINST TRANSPLANT REJECTION
     Dosage: DRUG: TACROLIMUS PROGRAF, DATE OF LAST DOSE PRIOR TO SAE: 28/SEP/2011
     Route: 048
     Dates: start: 20110617

REACTIONS (9)
  - Hyperparathyroidism secondary [Unknown]
  - Viral sepsis [Recovered/Resolved]
  - Agranulocytosis [Unknown]
  - Metabolic acidosis [Unknown]
  - Epstein-Barr virus infection [Unknown]
  - Epstein-Barr virus infection [Recovered/Resolved with Sequelae]
  - BK virus infection [Unknown]
  - Leukopenia [Unknown]
  - Acne [Unknown]

NARRATIVE: CASE EVENT DATE: 20110928
